FAERS Safety Report 18923551 (Version 2)
Quarter: 2021Q2

REPORT INFORMATION
  Report Type: Report from Study
  Country: DE (occurrence: DE)
  Receive Date: 20210222
  Receipt Date: 20210512
  Transmission Date: 20210717
  Serious: Yes (Death, Hospitalization)
  Sender: FDA-Public Use
  Company Number: DE-BAUSCH-BL-2021-005811

PATIENT
  Age: 89 Year
  Sex: Female
  Weight: 69 kg

DRUGS (2)
  1. DEXAMETHASONE. [Suspect]
     Active Substance: DEXAMETHASONE
     Indication: PLASMA CELL MYELOMA
     Dosage: DATE OF THE LAST DOSAGE BEFORE EVENT ONSET: 28/JAN/2021
     Route: 065
     Dates: start: 20200727, end: 20210128
  2. VELCADE [Suspect]
     Active Substance: BORTEZOMIB
     Indication: PLASMA CELL MYELOMA
     Dosage: DATE OF THE LAST DOSAGE BEFORE EVENT ONSET: 28/JAN/2021
     Route: 065
     Dates: start: 20200727, end: 20210128

REACTIONS (1)
  - Bacterial infection [Fatal]

NARRATIVE: CASE EVENT DATE: 20210205
